FAERS Safety Report 6177632-6 (Version None)
Quarter: 2009Q2

REPORT INFORMATION
  Report Type: 
  Country: None (occurrence: None)
  Receive Date: 20090501
  Receipt Date: 20090501
  Transmission Date: 20091009
  Serious: No
  Sender: FDA-Public Use
  Company Number: None

PATIENT
  Age: 60 Year
  Sex: Male
  Weight: 79.2 kg

DRUGS (9)
  1. ENOXAPARIN SODIUM [Suspect]
     Indication: THROMBOSIS PROPHYLAXIS
     Dosage: 40MG SQ QD
     Route: 058
     Dates: start: 20090309, end: 20090313
  2. HYDROMORPHONE HCL [Concomitant]
  3. LANSOPRAZOLE [Concomitant]
  4. PROCHLORPERAZINE [Concomitant]
  5. ONDANSETRON [Concomitant]
  6. DOCUSATE [Concomitant]
  7. TEMAZEPAM [Concomitant]
  8. GABAPENTIN [Concomitant]
  9. METHADONE HCL [Concomitant]

REACTIONS (1)
  - HEPARIN-INDUCED THROMBOCYTOPENIA [None]
